FAERS Safety Report 13355020 (Version 1)
Quarter: 2017Q1

REPORT INFORMATION
  Report Type: Spontaneous
  Country: US (occurrence: US)
  Receive Date: 20170321
  Receipt Date: 20170321
  Transmission Date: 20170429
  Serious: Yes (Hospitalization)
  Sender: FDA-Public Use
  Company Number: US-ACTELION-A-NJ2017-151184

PATIENT
  Age: 32 Year
  Sex: Female

DRUGS (2)
  1. LETAIRIS [Concomitant]
     Active Substance: AMBRISENTAN
  2. VELETRI [Suspect]
     Active Substance: EPOPROSTENOL
     Indication: PULMONARY ARTERIAL HYPERTENSION
     Dosage: 47.25 NG/KG, PER MIN
     Route: 042

REACTIONS (5)
  - Catheter site erythema [Unknown]
  - Catheter site infection [Unknown]
  - Catheter site swelling [Unknown]
  - Tenderness [Unknown]
  - Purulent discharge [Unknown]

NARRATIVE: CASE EVENT DATE: 201703
